FAERS Safety Report 10175297 (Version 1)
Quarter: 2014Q2

REPORT INFORMATION
  Report Type: Spontaneous
  Country: US (occurrence: US)
  Receive Date: 20140515
  Receipt Date: 20140515
  Transmission Date: 20141212
  Serious: No
  Sender: FDA-Public Use
  Company Number: US-VIVUS-2014V1000210

PATIENT
  Age: 3 Decade
  Sex: Female

DRUGS (1)
  1. QSYMIA [Suspect]
     Indication: WEIGHT DECREASED
     Route: 048

REACTIONS (1)
  - Diplopia [Unknown]
